FAERS Safety Report 13182235 (Version 1)
Quarter: 2017Q1

REPORT INFORMATION
  Report Type: Spontaneous
  Country: US (occurrence: US)
  Receive Date: 20170202
  Receipt Date: 20170202
  Transmission Date: 20170428
  Serious: No
  Sender: FDA-Public Use
  Company Number: None

PATIENT
  Age: 58 Year
  Sex: Male

DRUGS (1)
  1. HUMIRA [Suspect]
     Active Substance: ADALIMUMAB
     Indication: RHEUMATOID ARTHRITIS
     Dosage: 40MG AS DIRECTED SQ
     Route: 058
     Dates: start: 20170118

REACTIONS (7)
  - Haemorrhage [None]
  - Myalgia [None]
  - Dyspnoea [None]
  - Arthralgia [None]
  - Fatigue [None]
  - Contusion [None]
  - Wheezing [None]

NARRATIVE: CASE EVENT DATE: 20170119
